FAERS Safety Report 5309286-2 (Version None)
Quarter: 2007Q2

REPORT INFORMATION
  Report Type: 
  Country: None (occurrence: None)
  Receive Date: 20070424
  Receipt Date: 20070424
  Transmission Date: 20071010
  Serious: Yes (Hospitalization)
  Sender: FDA-Public Use
  Company Number: None

PATIENT
  Age: 29 Year
  Sex: Female
  Weight: 72.5755 kg

DRUGS (2)
  1. PRO-AIR [Suspect]
     Indication: ASTHMA
     Dosage: 90 MCG EVERY 1/2 HOUR PO
     Route: 048
     Dates: start: 20070130, end: 20070423
  2. PRO-AIR [Suspect]
     Indication: MULTIPLE ALLERGIES
     Dosage: 90 MCG EVERY 1/2 HOUR PO
     Route: 048
     Dates: start: 20070130, end: 20070423

REACTIONS (4)
  - DRUG INEFFECTIVE [None]
  - PHARMACEUTICAL PRODUCT COMPLAINT [None]
  - THROAT IRRITATION [None]
  - WHEEZING [None]
